FAERS Safety Report 17868365 (Version 1)
Quarter: 2020Q2

REPORT INFORMATION
  Report Type: Spontaneous
  Country: AU (occurrence: AU)
  Receive Date: 20200606
  Receipt Date: 20200606
  Transmission Date: 20200714
  Serious: Yes (Other)
  Sender: FDA-Public Use
  Company Number: AU-ABBVIE-20K-008-3407923-00

PATIENT
  Sex: Male

DRUGS (6)
  1. TRUVADA [Suspect]
     Active Substance: EMTRICITABINE\TENOFOVIR DISOPROXIL FUMARATE
     Indication: HIV INFECTION
     Dosage: 1 UNSPECIFIED DOSE
     Route: 065
  2. ZUCLOPENTHIXOL DECANOATE [Concomitant]
     Active Substance: ZUCLOPENTHIXOL DECANOATE
     Indication: PRODUCT USED FOR UNKNOWN INDICATION
     Route: 030
  3. RITONAVIR. [Suspect]
     Active Substance: RITONAVIR
     Indication: HIV INFECTION
     Dosage: 1 UNSPECIFIED DOSE
     Route: 048
  4. GENVOYA [Suspect]
     Active Substance: COBICISTAT\ELVITEGRAVIR\EMTRICITABINE\TENOFOVIR ALAFENAMIDE FUMARATE
     Indication: HIV INFECTION
     Dosage: 1 UNSPECIFIED DOSE
     Route: 065
  5. BIKTARVY [Suspect]
     Active Substance: BICTEGRAVIR SODIUM\EMTRICITABINE\TENOFOVIR ALAFENAMIDE FUMARATE
     Indication: HIV INFECTION
     Dosage: 1 UNSPECIFIED DOSE
     Route: 065
  6. DARUNAVIR [Suspect]
     Active Substance: DARUNAVIR
     Indication: HIV INFECTION
     Dosage: 1 UNSPECIFIED DOSE
     Route: 048

REACTIONS (3)
  - Blood HIV RNA increased [Unknown]
  - Product dose omission [Unknown]
  - CD4 lymphocytes decreased [Unknown]

NARRATIVE: CASE EVENT DATE: 20191010
